FAERS Safety Report 4589693-6 (Version None)
Quarter: 2005Q1

REPORT INFORMATION
  Report Type: 
  Country: None (occurrence: None)
  Receive Date: 20050217
  Receipt Date: 20050201
  Transmission Date: 20050727
  Serious: Yes (Hospitalization)
  Sender: FDA-Public Use
  Company Number: DSA_25851_2005

PATIENT
  Age: 41 Year
  Sex: Male

DRUGS (3)
  1. TAVOR [Suspect]
     Dosage: 50 MG ONCE PO
     Route: 048
     Dates: start: 20050126, end: 20050126
  2. RISPERDAL [Suspect]
     Dosage: DF ONCE PO
     Route: 048
     Dates: start: 20050126, end: 20050126
  3. XIMOVAN [Suspect]
     Dosage: 90 MG ONCE PO
     Route: 048
     Dates: start: 20050126, end: 20050126

REACTIONS (8)
  - BLOOD CREATINE PHOSPHOKINASE INCREASED [None]
  - BLOOD CREATININE INCREASED [None]
  - BLOOD UREA INCREASED [None]
  - CONTUSION [None]
  - DEHYDRATION [None]
  - FALL [None]
  - INTENTIONAL MISUSE [None]
  - SOMNOLENCE [None]
